FAERS Safety Report 11038163 (Version 1)
Quarter: 2015Q2

REPORT INFORMATION
  Report Type: Spontaneous
  Country: US (occurrence: US)
  Receive Date: 20150416
  Receipt Date: 20150416
  Transmission Date: 20150821
  Serious: No
  Sender: FDA-Public Use
  Company Number: US-BAYER-2015-136000

PATIENT
  Age: 9 Month
  Sex: Male
  Weight: 10 kg

DRUGS (2)
  1. CLARITIN [Suspect]
     Active Substance: LORATADINE
     Dosage: UNK, ONCE
     Route: 048
     Dates: start: 20150409, end: 20150409
  2. CLARITIN [Suspect]
     Active Substance: LORATADINE
     Dosage: 2 MILLILITERS DOSE
     Route: 048
     Dates: start: 20150409, end: 20150409

REACTIONS (1)
  - Accidental exposure to product by child [None]

NARRATIVE: CASE EVENT DATE: 20150409
